FAERS Safety Report 9714624 (Version 1)
Quarter: 2013Q4

REPORT INFORMATION
  Report Type: Spontaneous
  Country: GB (occurrence: None)
  Receive Date: 20131125
  Receipt Date: 20131125
  Transmission Date: 20140711
  Serious: Yes (Hospitalization)
  Sender: FDA-Public Use
  Company Number: 2024204

PATIENT
  Age: 45 Year
  Sex: Female
  Weight: 64.5 kg

DRUGS (6)
  1. (CARBOPLATIN) [Suspect]
     Indication: BREAST CANCER
     Dosage: 760 MBQ MEGABECQUEREL (S)
     Route: 042
     Dates: start: 20120914
  2. DOCETAXEL [Suspect]
     Indication: BREAST CANCER
     Dosage: 130 MG MILLIGRAM (S) INTRAVENOUS (NOT OTHERWISE SPECIFIED)
     Route: 042
     Dates: start: 20120914
  3. TRASTUZUMAB [Suspect]
     Indication: BREAST CANCER
     Dosage: 5145 MG MILLIGRAM(S) (UNKNOWN)  INTRAVENOUS (NOT OTHERWISE SPECIFIED)
     Route: 042
     Dates: start: 20120914
  4. (CHLORPHENAMINE MALEATE) [Concomitant]
  5. (PERTUZUMAB) [Concomitant]
  6. (G-CSF) [Concomitant]

REACTIONS (1)
  - Neutropenic sepsis [None]
